FAERS Safety Report 11491209 (Version 1)
Quarter: 2015Q3

REPORT INFORMATION
  Report Type: Spontaneous
  Country: US (occurrence: US)
  Receive Date: 20150910
  Receipt Date: 20150910
  Transmission Date: 20151125
  Serious: No
  Sender: FDA-Public Use
  Company Number: US-JNJFOC-20141104047

PATIENT
  Age: 84 Year
  Sex: Male
  Weight: 74.84 kg

DRUGS (2)
  1. IMODIUM MULTI-SYMPTOM RELIEF [Suspect]
     Active Substance: DIMETHICONE\LOPERAMIDE HYDROCHLORIDE
     Route: 048
  2. IMODIUM MULTI-SYMPTOM RELIEF [Suspect]
     Active Substance: DIMETHICONE\LOPERAMIDE HYDROCHLORIDE
     Indication: COLITIS
     Dosage: UPTO 8 CAPLETS PER DAY
     Route: 048

REACTIONS (6)
  - Drug prescribing error [Unknown]
  - Overdose [Unknown]
  - Product package associated injury [Recovering/Resolving]
  - Product blister packaging issue [Unknown]
  - Product label issue [Unknown]
  - Product physical issue [Unknown]
